FAERS Safety Report 6801535-4 (Version None)
Quarter: 2010Q2

REPORT INFORMATION
  Report Type: 
  Country: None (occurrence: None)
  Receive Date: 20100629
  Receipt Date: 20100519
  Transmission Date: 20101027
  Serious: Yes (Death, Other)
  Sender: FDA-Public Use
  Company Number: US-BAXTER-2010BH003459

PATIENT
  Age: 58 Year
  Sex: Female

DRUGS (18)
  1. HEPARIN SODIUM [Suspect]
     Indication: THROMBOSIS PROPHYLAXIS
     Route: 042
     Dates: start: 20071101
  2. HEPARIN SODIUM [Suspect]
     Route: 042
     Dates: start: 20071101, end: 20071201
  3. HEPARIN SODIUM [Suspect]
     Route: 042
     Dates: start: 20071101, end: 20071201
  4. HEPARIN SODIUM [Suspect]
     Route: 042
     Dates: start: 20071101, end: 20071201
  5. HEPARIN SODIUM [Suspect]
     Route: 042
     Dates: start: 20071101, end: 20071201
  6. METFORMIN HCL [Concomitant]
     Indication: DRUG USE FOR UNKNOWN INDICATION
     Route: 065
  7. PROPOFOL [Concomitant]
     Indication: DRUG USE FOR UNKNOWN INDICATION
     Route: 041
  8. LASIX [Concomitant]
     Indication: DRUG USE FOR UNKNOWN INDICATION
     Route: 041
  9. PROTONIX [Concomitant]
     Indication: DRUG USE FOR UNKNOWN INDICATION
     Route: 042
  10. LINEZOLID [Concomitant]
     Indication: DRUG USE FOR UNKNOWN INDICATION
     Route: 065
  11. ANCEF [Concomitant]
     Indication: DRUG USE FOR UNKNOWN INDICATION
     Route: 065
  12. EPOGEN [Concomitant]
     Indication: DRUG USE FOR UNKNOWN INDICATION
     Route: 058
  13. HYDRALAZINE HCL [Concomitant]
     Indication: DRUG USE FOR UNKNOWN INDICATION
     Route: 065
  14. ISORDIL [Concomitant]
     Indication: DRUG USE FOR UNKNOWN INDICATION
     Route: 065
  15. COREG [Concomitant]
     Indication: DRUG USE FOR UNKNOWN INDICATION
     Route: 065
  16. AMIODARONE [Concomitant]
     Indication: DRUG USE FOR UNKNOWN INDICATION
     Route: 065
  17. ASPIRINE [Concomitant]
     Indication: DRUG USE FOR UNKNOWN INDICATION
     Route: 065
  18. INSULIN [Concomitant]
     Indication: DRUG USE FOR UNKNOWN INDICATION
     Route: 065

REACTIONS (25)
  - ABDOMINAL PAIN UPPER [None]
  - ADVERSE DRUG REACTION [None]
  - ASTHENIA [None]
  - ATRIAL FIBRILLATION [None]
  - CARDIAC VALVE DISEASE [None]
  - CEREBROVASCULAR ACCIDENT [None]
  - COAGULOPATHY [None]
  - CONVULSION [None]
  - DRUG HYPERSENSITIVITY [None]
  - DYSPNOEA [None]
  - ENDOCARDITIS [None]
  - ERYTHEMA [None]
  - INFECTION [None]
  - MYOCARDIAL INFARCTION [None]
  - NAUSEA [None]
  - ORGAN FAILURE [None]
  - PHARYNGEAL OEDEMA [None]
  - PLATELET COUNT DECREASED [None]
  - PNEUMONIA [None]
  - SEPSIS [None]
  - SEPTIC SHOCK [None]
  - SPEECH DISORDER [None]
  - TRANSIENT ISCHAEMIC ATTACK [None]
  - URTICARIA [None]
  - VISUAL IMPAIRMENT [None]
